FAERS Safety Report 17717109 (Version 7)
Quarter: 2022Q4

REPORT INFORMATION
  Report Type: Spontaneous
  Country: US (occurrence: US)
  Receive Date: 20200428
  Receipt Date: 20221219
  Transmission Date: 20230113
  Serious: No
  Sender: FDA-Public Use
  Company Number: US-PFIZER INC-2020029529

PATIENT
  Age: 51 Year
  Sex: Female

DRUGS (6)
  1. XELJANZ XR [Suspect]
     Active Substance: TOFACITINIB CITRATE
     Indication: Rheumatoid arthritis
     Dosage: 11 MG, 1X/DAY
     Route: 048
     Dates: start: 201902
  2. XELJANZ XR [Suspect]
     Active Substance: TOFACITINIB CITRATE
     Indication: Arthritis
     Dosage: 11 MG, 1X/DAY
     Route: 048
     Dates: start: 2020, end: 20220921
  3. XELJANZ XR [Suspect]
     Active Substance: TOFACITINIB CITRATE
     Dosage: 11 MG, 1X/DAY
     Route: 048
     Dates: start: 20220927
  4. VICTOZA [Concomitant]
     Active Substance: LIRAGLUTIDE
     Indication: Glucose tolerance impaired
     Dosage: UNK
  5. LEXAPRO [Concomitant]
     Active Substance: ESCITALOPRAM OXALATE
     Indication: Anxiety
     Dosage: UNK
  6. LEXAPRO [Concomitant]
     Active Substance: ESCITALOPRAM OXALATE
     Indication: Depression

REACTIONS (15)
  - Product dose omission issue [Unknown]
  - Therapeutic product effect delayed [Unknown]
  - Therapeutic response unexpected [Unknown]
  - Sinusitis [Unknown]
  - Malaise [Unknown]
  - Osteoarthritis [Unknown]
  - Pain in extremity [Unknown]
  - Bursitis [Unknown]
  - Tinnitus [Unknown]
  - Dizziness [Unknown]
  - Pain [Recovering/Resolving]
  - Fall [Unknown]
  - Myalgia [Unknown]
  - Arthralgia [Unknown]
  - Joint effusion [Unknown]

NARRATIVE: CASE EVENT DATE: 20220901
